FAERS Safety Report 20866717 (Version 4)
Quarter: 2022Q4

REPORT INFORMATION
  Report Type: Report from Study
  Country: JP (occurrence: JP)
  Receive Date: 20220524
  Receipt Date: 20221208
  Transmission Date: 20230112
  Serious: No
  Sender: FDA-Public Use
  Company Number: JP-NIPPON SHINYAKU-NIP-2022-000024

PATIENT

DRUGS (13)
  1. VILTEPSO [Suspect]
     Active Substance: VILTOLARSEN
     Indication: Duchenne muscular dystrophy
     Dosage: 80 MG/KG/DAY (ONCE A WEEK)
     Route: 041
     Dates: start: 20220420
  2. ZESTRIL [Concomitant]
     Active Substance: LISINOPRIL
     Indication: Duchenne muscular dystrophy
     Dosage: 2.5 MG
     Route: 065
  3. CARVEDILOL [Concomitant]
     Active Substance: CARVEDILOL
     Indication: Duchenne muscular dystrophy
     Dosage: 1.25 MG
     Route: 065
     Dates: end: 20220421
  4. CARVEDILOL [Concomitant]
     Active Substance: CARVEDILOL
     Dosage: 2.5 MG
     Route: 065
     Dates: start: 20220422, end: 20220505
  5. CARVEDILOL [Concomitant]
     Active Substance: CARVEDILOL
     Indication: Duchenne muscular dystrophy
     Dosage: 2.5 MG
     Route: 065
     Dates: start: 20220506, end: 20220728
  6. CARVEDILOL [Concomitant]
     Active Substance: CARVEDILOL
     Dosage: 5 MG
     Route: 065
     Dates: start: 20220729, end: 20220825
  7. CARVEDILOL [Concomitant]
     Active Substance: CARVEDILOL
     Dosage: 7.5 MG
     Route: 065
     Dates: start: 20220826, end: 20220908
  8. CARVEDILOL [Concomitant]
     Active Substance: CARVEDILOL
     Dosage: 10 MG
     Route: 065
     Dates: start: 20220909
  9. SENNOSIDES A AND B [Concomitant]
     Active Substance: SENNOSIDES A AND B
     Indication: Constipation
     Dosage: 12 MG
     Route: 065
     Dates: start: 20220518
  10. CARBOCYSTEINE [Concomitant]
     Active Substance: CARBOCYSTEINE
     Indication: Sputum increased
     Dosage: 2 DF
     Route: 065
     Dates: start: 20220715
  11. PAZUFLOXACIN MESILATE [Concomitant]
     Active Substance: PAZUFLOXACIN MESILATE
     Indication: Product used for unknown indication
     Dosage: 1000 MILLIGRAM
     Route: 065
     Dates: start: 20220427, end: 20220506
  12. MEROPENEM [Concomitant]
     Active Substance: MEROPENEM
     Indication: Product used for unknown indication
     Dosage: 1 GRAM
     Route: 065
     Dates: start: 20220506, end: 20220513
  13. ZOLPIDEM TARTRATE [Concomitant]
     Active Substance: ZOLPIDEM TARTRATE
     Indication: Insomnia
     Dosage: 5 MG
     Route: 065
     Dates: start: 20220513

REACTIONS (2)
  - Pneumonia aspiration [Unknown]
  - Pyrexia [Unknown]

NARRATIVE: CASE EVENT DATE: 20220427
